FAERS Safety Report 11124123 (Version 7)
Quarter: 2015Q4

REPORT INFORMATION
  Report Type: Spontaneous
  Country: US (occurrence: US)
  Receive Date: 20150520
  Receipt Date: 20151218
  Transmission Date: 20160304
  Serious: Yes (Hospitalization, Other)
  Sender: FDA-Public Use
  Company Number: US-AUROBINDO-AUR-APL-2015-04321

PATIENT
  Age: 69 Year
  Sex: Male
  Weight: 88.9 kg

DRUGS (1)
  1. METFORMIN [Suspect]
     Active Substance: METFORMIN HYDROCHLORIDE
     Indication: TYPE 2 DIABETES MELLITUS
     Route: 065

REACTIONS (12)
  - Vomiting [Recovering/Resolving]
  - Abdominal pain [Recovered/Resolved]
  - Anaemia [Unknown]
  - Multi-organ failure [Unknown]
  - Electrocardiogram QT prolonged [Recovering/Resolving]
  - Nausea [Recovering/Resolving]
  - White blood cell count decreased [Unknown]
  - Diarrhoea [Recovered/Resolved]
  - Renal failure [Unknown]
  - Lactic acidosis [Unknown]
  - Dehydration [Recovering/Resolving]
  - Asthenia [Recovered/Resolved]

NARRATIVE: CASE EVENT DATE: 20150329
